FAERS Safety Report 25575936 (Version 1)
Quarter: 2025Q3

REPORT INFORMATION
  Report Type: Spontaneous
  Country: EU (occurrence: EU)
  Receive Date: 20250718
  Receipt Date: 20250718
  Transmission Date: 20251020
  Serious: Yes (Hospitalization, Other)
  Sender: AUROBINDO
  Company Number: EU-CHEPLA-2025008232

PATIENT
  Sex: Female
  Weight: 0.375 kg

DRUGS (16)
  1. VALGANCICLOVIR [Suspect]
     Active Substance: VALGANCICLOVIR
     Indication: Congenital cytomegalovirus infection
     Route: 065
  2. VALGANCICLOVIR [Suspect]
     Active Substance: VALGANCICLOVIR
     Route: 065
  3. GANCICLOVIR [Suspect]
     Active Substance: GANCICLOVIR
     Indication: Congenital cytomegalovirus infection
     Route: 065
  4. GANCICLOVIR [Suspect]
     Active Substance: GANCICLOVIR
     Route: 065
  5. UNSPECIFIED INGREDIENT [Concomitant]
     Active Substance: UNSPECIFIED INGREDIENT
     Indication: Congenital cytomegalovirus infection
     Route: 065
  6. MILRINONE [Concomitant]
     Active Substance: MILRINONE
     Indication: Congenital cytomegalovirus infection
     Route: 065
  7. FUROSEMIDE [Concomitant]
     Active Substance: FUROSEMIDE
     Indication: Congenital cytomegalovirus infection
     Route: 065
  8. PROPRANOLOL [Concomitant]
     Active Substance: PROPRANOLOL HYDROCHLORIDE
     Indication: Congenital cytomegalovirus infection
     Route: 065
  9. CAPTOPRIL [Concomitant]
     Active Substance: CAPTOPRIL
     Indication: Congenital cytomegalovirus infection
     Route: 065
  10. NITRIC OXIDE [Concomitant]
     Active Substance: NITRIC OXIDE
     Indication: Congenital cytomegalovirus infection
  11. ILOPROST [Concomitant]
     Active Substance: ILOPROST
     Indication: Congenital cytomegalovirus infection
     Route: 065
  12. SILDENAFIL [Concomitant]
     Active Substance: SILDENAFIL
     Indication: Congenital cytomegalovirus infection
     Route: 065
  13. BOSENTAN [Concomitant]
     Active Substance: BOSENTAN
     Indication: Congenital cytomegalovirus infection
     Route: 065
  14. LEVOSIMENDAN [Concomitant]
     Active Substance: LEVOSIMENDAN
     Indication: Congenital cytomegalovirus infection
     Route: 065
  15. HYDROCORTISONE [Concomitant]
     Active Substance: HYDROCORTISONE
     Indication: Congenital cytomegalovirus infection
     Route: 065
  16. GABAPENTIN [Concomitant]
     Active Substance: GABAPENTIN
     Indication: Neuralgia
     Route: 065

REACTIONS (9)
  - Cardiomyopathy [Recovered/Resolved]
  - Coarctation of the aorta [Recovered/Resolved]
  - Aorta hypoplasia [Recovered/Resolved]
  - Bronchopulmonary dysplasia [Recovered/Resolved]
  - Guillain-Barre syndrome [Recovered/Resolved]
  - Retinopathy [Unknown]
  - Thrombocytopenia [Unknown]
  - Leukopenia [Unknown]
  - Off label use [Unknown]
